FAERS Safety Report 23026231 (Version 1)
Quarter: 2023Q4

REPORT INFORMATION
  Report Type: Report from Study
  Country: US (occurrence: US)
  Receive Date: 20231004
  Receipt Date: 20231004
  Transmission Date: 20240109
  Serious: Yes (Death, Hospitalization)
  Sender: FDA-Public Use
  Company Number: US-ABBVIE-5434030

PATIENT
  Age: 81 Year
  Sex: Female
  Weight: 47 kg

DRUGS (1)
  1. VRAYLAR [Suspect]
     Active Substance: CARIPRAZINE
     Indication: Depression
     Dosage: FORM STRENGTH: 1.5 MILLIGRAM?START DATE TEXT: APPROXIMATELY 2 OR 3 YEARS AGO
     Route: 048
     Dates: end: 20230929

REACTIONS (2)
  - Death [Fatal]
  - Unevaluable event [Unknown]

NARRATIVE: CASE EVENT DATE: 20230930
